FAERS Safety Report 5034784-9 (Version None)
Quarter: 2006Q2

REPORT INFORMATION
  Report Type: 
  Country: None (occurrence: None)
  Receive Date: 20060502
  Receipt Date: 20060302
  Transmission Date: 20061013
  Serious: Yes (Other)
  Sender: FDA-Public Use
  Company Number: 251297

PATIENT
  Age: 42 Year
  Sex: Female
  Weight: 81.6 kg

DRUGS (6)
  1. LEVEMIR FLEXPEN(INSULIN DETEMIR) SOLUTION FOR INJECTION, .0024MOL/L [Suspect]
     Indication: INSULIN-REQUIRING TYPE II DIABETES MELLITUS
     Dosage: SUBCUTANEOUS
     Route: 058
     Dates: start: 20060301, end: 20060301
  2. HUMALOG [Concomitant]
  3. ASPIRIN [Concomitant]
  4. ATORVASTATIN CALCIUM [Concomitant]
  5. METFORMIN (METFORMIN) TABLET, 850 MG [Concomitant]
  6. ROSIGLITAZONE MALEATE [Concomitant]

REACTIONS (1)
  - URTICARIA GENERALISED [None]
